FAERS Safety Report 13777455 (Version 2)
Quarter: 2017Q3

REPORT INFORMATION
  Report Type: Report from Study
  Country: JP (occurrence: JP)
  Receive Date: 20170721
  Receipt Date: 20170725
  Transmission Date: 20171127
  Serious: Yes (Hospitalization, Other)
  Sender: FDA-Public Use
  Company Number: JP-BRISTOL-MYERS SQUIBB COMPANY-BMS-2017-060090

PATIENT
  Age: 68 Year
  Sex: Male

DRUGS (1)
  1. NIVOLUMAB [Suspect]
     Active Substance: NIVOLUMAB
     Indication: HEAD AND NECK CANCER
     Dosage: 150 MG, QD
     Route: 041
     Dates: start: 20170614

REACTIONS (4)
  - Encephalopathy [Recovered/Resolved]
  - Infusion related reaction [Recovered/Resolved]
  - Disseminated intravascular coagulation [Unknown]
  - Transfusion [Unknown]

NARRATIVE: CASE EVENT DATE: 20170614
